FAERS Safety Report 5206316-3 (Version None)
Quarter: 2006Q4

REPORT INFORMATION
  Report Type: 
  Country: None (occurrence: None)
  Receive Date: 20061031
  Receipt Date: 20060907
  Transmission Date: 20070319
  Serious: No
  Sender: FDA-Public Use
  Company Number: 2006-BP-10525BP

PATIENT

DRUGS (1)
  1. APTIVUS/RITONAVIR CAPSULES (ALL OTHER THERAPEUTIC PRODUCTS) [Suspect]
     Indication: HIV INFECTION
     Dosage: SEE TEXT (SEE TEXT, 250MG/100 MG), PO
     Route: 048

REACTIONS (1)
  - DRUG INEFFECTIVE [None]
